FAERS Safety Report 6650293-5 (Version None)
Quarter: 2010Q1

REPORT INFORMATION
  Report Type: 
  Country: None (occurrence: None)
  Receive Date: 20100325
  Receipt Date: 20100312
  Transmission Date: 20100710
  Serious: Yes (Other)
  Sender: FDA-Public Use
  Company Number: PHHY2010JP15727

PATIENT

DRUGS (1)
  1. ZOMETA [Suspect]
     Dosage: UNK
     Route: 042

REACTIONS (4)
  - DEBRIDEMENT [None]
  - OPEN WOUND [None]
  - OSTEONECROSIS [None]
  - TOOTH EXTRACTION [None]
